FAERS Safety Report 23923268 (Version 2)
Quarter: 2024Q2

REPORT INFORMATION
  Report Type: Spontaneous
  Country: JP (occurrence: JP)
  Receive Date: 20240531
  Receipt Date: 20240611
  Transmission Date: 20240716
  Serious: Yes (Other)
  Sender: FDA-Public Use
  Company Number: JP-MTPC-MTPC2020-0038438

PATIENT
  Sex: Female

DRUGS (3)
  1. CANAGLIFLOZIN [Suspect]
     Active Substance: CANAGLIFLOZIN
     Indication: Product used for unknown indication
     Route: 048
  2. ETIZOLAM [Suspect]
     Active Substance: ETIZOLAM
     Route: 048
  3. IPRAGLIFLOZIN L-PROLINE [Concomitant]
     Active Substance: IPRAGLIFLOZIN L-PROLINE
     Dosage: UNK
     Route: 048

REACTIONS (4)
  - Apnoea [Unknown]
  - Malaise [Unknown]
  - Faeces soft [Unknown]
  - Diarrhoea [Unknown]
